FAERS Safety Report 23300649 (Version 1)
Quarter: 2023Q4

REPORT INFORMATION
  Report Type: Spontaneous
  Country: CN (occurrence: CN)
  Receive Date: 20231215
  Receipt Date: 20231215
  Transmission Date: 20240110
  Serious: Yes (Hospitalization, Other)
  Sender: FDA-Public Use
  Company Number: CN-DSJP-DSJ-2023-151038

PATIENT
  Age: 66 Year
  Sex: Female
  Weight: 50 kg

DRUGS (4)
  1. EDOXABAN [Suspect]
     Active Substance: EDOXABAN
     Indication: Venous thrombosis
     Dosage: 60 MG, QD
     Route: 048
     Dates: start: 20211208, end: 20211227
  2. CIMETIDINE [Suspect]
     Active Substance: CIMETIDINE
     Indication: Prophylaxis
     Dosage: 0.20 G, QD
     Route: 041
     Dates: start: 20211212, end: 20211224
  3. AMPHOTERICIN B [Suspect]
     Active Substance: AMPHOTERICIN B
     Indication: Meningoencephalitis bacterial
     Dosage: 18 MG, QD
     Route: 041
     Dates: start: 20211225, end: 20211229
  4. FLUCONAZOLE [Suspect]
     Active Substance: FLUCONAZOLE
     Indication: Meningoencephalitis bacterial
     Dosage: 0.40 G, QD
     Route: 041
     Dates: start: 20211214, end: 20211229

REACTIONS (3)
  - Upper gastrointestinal haemorrhage [Recovering/Resolving]
  - Cryptococcosis [Unknown]
  - Diarrhoea [Unknown]

NARRATIVE: CASE EVENT DATE: 20211213
